FAERS Safety Report 4973241-2 (Version None)
Quarter: 2006Q2

REPORT INFORMATION
  Report Type: 
  Country: None (occurrence: None)
  Receive Date: 20060414
  Receipt Date: 20050701
  Transmission Date: 20061013
  Serious: Yes (Hospitalization, Other)
  Sender: FDA-Public Use
  Company Number: US-MERCK-0507USA00540

PATIENT
  Age: 58 Year
  Sex: Male
  Weight: 111 kg

DRUGS (8)
  1. VIOXX [Suspect]
     Indication: ARTHRITIS
     Route: 048
     Dates: start: 20020101, end: 20030101
  2. GLUCOPHAGE [Concomitant]
     Indication: DIABETES MELLITUS
     Route: 065
  3. AMARYL [Concomitant]
     Indication: DIABETES MELLITUS
     Route: 065
  4. AVANDIA [Concomitant]
     Indication: DIABETES MELLITUS
     Route: 065
  5. TYLENOL W/ CODEINE NO. 3 [Concomitant]
     Indication: PAIN
     Route: 065
  6. NORVASC [Concomitant]
     Indication: CARDIOVASCULAR DISORDER
     Route: 065
  7. NORVASC [Concomitant]
     Indication: CHEST PAIN
     Route: 065
  8. NAPROXEN [Concomitant]
     Route: 065

REACTIONS (10)
  - ARTHRITIS [None]
  - CARDIOVASCULAR DISORDER [None]
  - CEREBROVASCULAR ACCIDENT [None]
  - CHEST PAIN [None]
  - GASTRIC DISORDER [None]
  - HERNIA [None]
  - INFECTION [None]
  - LIMB INJURY [None]
  - POLYTRAUMATISM [None]
  - UNEVALUABLE EVENT [None]
